FAERS Safety Report 8486266-X (Version None)
Quarter: 2012Q3

REPORT INFORMATION
  Report Type: 
  Country: None (occurrence: None)
  Receive Date: 20120703
  Receipt Date: 20120620
  Transmission Date: 20120928
  Serious: Yes (Hospitalization, Other)
  Sender: FDA-Public Use
  Company Number: JP-PFIZER INC-2012157843

PATIENT
  Age: 78 Year
  Sex: Male

DRUGS (3)
  1. CELEBREX [Suspect]
     Indication: RHEUMATOID ARTHRITIS
     Dosage: 200 MG, DAILY
     Route: 048
     Dates: start: 20120416
  2. PREDNISOLONE SODIUM SUCCINATE INJ [Concomitant]
  3. REBAMIPIDE [Concomitant]

REACTIONS (1)
  - ATRIAL FIBRILLATION [None]
